FAERS Safety Report 6932522-3 (Version None)
Quarter: 2010Q3

REPORT INFORMATION
  Report Type: 
  Country: None (occurrence: None)
  Receive Date: 20100817
  Receipt Date: 20100810
  Transmission Date: 20110219
  Serious: Yes (Death)
  Sender: FDA-Public Use
  Company Number: 2010US003230

PATIENT
  Age: 66 Year
  Sex: Male
  Weight: 87 kg

DRUGS (14)
  1. PROGRAF [Suspect]
     Indication: RENAL TRANSPLANT
     Dosage: 1 MG, BID, ORAL
     Route: 048
     Dates: start: 20050401
  2. ATENOLOL [Concomitant]
  3. CHLORPROMAZINE [Concomitant]
  4. CIALIS [Concomitant]
  5. COMBIVENT (IPRATROPIUM BROMIDE) [Concomitant]
  6. FLEXERIL [Concomitant]
  7. LASIX [Concomitant]
  8. HYDRALAZINE HCL [Concomitant]
  9. LORTAB 5/500 (HYDROCODONE BITARTRATE, PARACETAMOL) TABLET [Concomitant]
  10. LACTULOSE [Concomitant]
  11. LEFLUNOMIDE [Concomitant]
  12. LISINOPRIL [Concomitant]
  13. OMEPRAZOLE [Concomitant]
  14. PREDNISONE [Concomitant]

REACTIONS (1)
  - DEATH [None]
